FAERS Safety Report 21548602 (Version 2)
Quarter: 2022Q4

REPORT INFORMATION
  Report Type: Spontaneous
  Country: US (occurrence: US)
  Receive Date: 20221103
  Receipt Date: 20221103
  Transmission Date: 20230113
  Serious: Yes (Death, Other)
  Sender: FDA-Public Use
  Company Number: US-PFIZER INC-PV202200093174

PATIENT
  Age: 76 Year
  Sex: Male

DRUGS (5)
  1. SOLU-MEDROL [Suspect]
     Active Substance: METHYLPREDNISOLONE SODIUM SUCCINATE
     Indication: Neutropenia
     Dosage: 125 MG, CYCLIC (EVERY 12H)
  2. IMMUNE GLOBULIN NOS [Suspect]
     Active Substance: IMMUNE GLOBULIN NOS
     Indication: Neutropenia
     Dosage: 500 MG/KG
  3. FILGRASTIM [Suspect]
     Active Substance: FILGRASTIM
     Indication: Neutropenia
     Dosage: 480 UG, DAILY
  4. FILGRASTIM [Suspect]
     Active Substance: FILGRASTIM
     Dosage: UNK, DAILY
  5. PREDNISONE [Suspect]
     Active Substance: PREDNISONE
     Indication: Neutropenia
     Dosage: 1 MG/KG

REACTIONS (2)
  - Death [Fatal]
  - Drug ineffective [Fatal]
